FAERS Safety Report 8938126 (Version 1)
Quarter: 2012Q4

REPORT INFORMATION
  Report Type: Spontaneous
  Country: US (occurrence: None)
  Receive Date: 20121128
  Receipt Date: 20121128
  Transmission Date: 20130627
  Serious: No
  Sender: FDA-Public Use
  Company Number: None

PATIENT
  Sex: Female

DRUGS (2)
  1. DEPO PROVERA [Suspect]
     Dates: start: 201206
  2. DEPRO SHOT [Concomitant]
     Dates: start: 2007, end: 2012

REACTIONS (2)
  - Feeling abnormal [None]
  - Unevaluable event [None]
